FAERS Safety Report 6178843-6 (Version None)
Quarter: 2009Q2

REPORT INFORMATION
  Report Type: 
  Country: None (occurrence: None)
  Receive Date: 20090504
  Receipt Date: 20090326
  Transmission Date: 20091009
  Serious: No
  Sender: FDA-Public Use
  Company Number: PR-ALEXION-A200900253

PATIENT
  Sex: Female

DRUGS (1)
  1. SOLIRIS [Suspect]
     Dosage: UNK
     Dates: start: 20090323

REACTIONS (3)
  - HEADACHE [None]
  - HYPERSOMNIA [None]
  - PAIN [None]
